FAERS Safety Report 26036909 (Version 2)
Quarter: 2025Q4

REPORT INFORMATION
  Report Type: Report from Study
  Country: US (occurrence: US)
  Receive Date: 20251112
  Receipt Date: 20251231
  Transmission Date: 20260118
  Serious: No
  Sender: PFIZER
  Company Number: US-PFIZER INC-202500088011

PATIENT
  Age: 84 Year
  Sex: Female

DRUGS (3)
  1. IBRANCE [Suspect]
     Active Substance: PALBOCICLIB
     Indication: Breast cancer female
     Dosage: 100 MG, CYCLIC (1 TIME EACH DAY, TAKE FOR 21 DAYS, THEN 7 DAYS OFF EVERY 28 DAYS)
     Route: 048
  2. IBRANCE [Suspect]
     Active Substance: PALBOCICLIB
     Dosage: 75 MG, CYCLIC (1 TIME EACH DAY FOR 21 DAYS THEN 7 DAYS OFF, EVERY 28 DAYS)
     Route: 048
  3. IBRANCE [Suspect]
     Active Substance: PALBOCICLIB
     Dosage: 75 MG, CYCLIC ( TAKE 1 TABLET BY MOUTH FOR 14 DAYS ON AND THEN 14 DAYS OFF)
     Route: 048

REACTIONS (2)
  - Laboratory test abnormal [Unknown]
  - Off label use [Unknown]
